FAERS Safety Report 7356791-3 (Version None)
Quarter: 2011Q1

REPORT INFORMATION
  Report Type: 
  Country: None (occurrence: None)
  Receive Date: 20110316
  Receipt Date: 20110314
  Transmission Date: 20110831
  Serious: Yes (Hospitalization)
  Sender: FDA-Public Use
  Company Number: US-BRISTOL-MYERS SQUIBB COMPANY-15315898

PATIENT
  Age: 64 Year
  Sex: Male
  Weight: 63 kg

DRUGS (16)
  1. PACLITAXEL [Suspect]
     Indication: NON-SMALL CELL LUNG CANCER
     Dosage: 1 IN  21D
     Route: 042
     Dates: start: 20100810
  2. CARBOPLATIN [Suspect]
     Indication: NON-SMALL CELL LUNG CANCER
     Dosage: 1 IN  21D 1 DF: 6AUC
     Route: 042
     Dates: start: 20100810
  3. MULTI-VITAMINS [Concomitant]
     Dates: start: 20100201
  4. ENALAPRIL MALEATE [Concomitant]
     Indication: HYPERTENSION
  5. ACETAMINOPHEN [Concomitant]
     Indication: PAIN
     Dates: start: 20100908
  6. GLIPIZIDE [Concomitant]
     Indication: DIABETES MELLITUS
     Dates: start: 20030101
  7. DEXAMETHASONE SODIUM PHOSPHATE [Concomitant]
     Route: 042
     Dates: start: 20100428
  8. FERROUS SULFATE TAB [Concomitant]
     Dates: start: 20100609
  9. ROSUVASTATIN CALCIUM [Concomitant]
     Indication: BLOOD CHOLESTEROL INCREASED
     Dates: start: 20020101
  10. METFORMIN [Concomitant]
     Indication: DIABETES MELLITUS
     Dates: start: 20070101
  11. RANITIDINE [Concomitant]
     Dates: start: 20100401
  12. MORPHINE SULDATE [Concomitant]
     Indication: PAIN
     Dates: start: 20100401
  13. FLOMAX [Concomitant]
     Indication: URINARY RETENTION
     Dosage: 1DF-0.4(UNITS NOT SPECIFIED),2008
     Dates: start: 20050101
  14. MAGNESIUM CHLORIDE [Concomitant]
     Dates: start: 20100526
  15. FINASTERIDE [Concomitant]
     Dates: start: 20080101
  16. ALUDROX [Concomitant]
     Indication: HYPERTENSION
     Dates: start: 20100801

REACTIONS (2)
  - PYREXIA [None]
  - CHILLS [None]
